FAERS Safety Report 6295429-3 (Version None)
Quarter: 2009Q3

REPORT INFORMATION
  Report Type: 
  Country: None (occurrence: None)
  Receive Date: 20090803
  Receipt Date: 20090723
  Transmission Date: 20100115
  Serious: Yes (Death)
  Sender: FDA-Public Use
  Company Number: US-BAXTER-2009BH011833

PATIENT
  Age: 61 Year
  Sex: Male

DRUGS (3)
  1. DIANEAL [Suspect]
     Indication: PERITONEAL DIALYSIS
     Route: 033
     Dates: end: 20090401
  2. DIANEAL [Suspect]
     Indication: PERITONEAL DIALYSIS
     Route: 033
     Dates: start: 20090401, end: 20090617
  3. DIANEAL [Suspect]
     Route: 033
     Dates: end: 20090401

REACTIONS (2)
  - CARDIAC ARREST [None]
  - ULTRAFILTRATION FAILURE [None]
